FAERS Safety Report 18352698 (Version 1)
Quarter: 2020Q4

REPORT INFORMATION
  Report Type: Spontaneous
  Country: US (occurrence: US)
  Receive Date: 20201006
  Receipt Date: 20201006
  Transmission Date: 20210114
  Serious: No
  Sender: FDA-Public Use
  Company Number: US-ALLERGAN-1942586US

PATIENT
  Sex: Female

DRUGS (1)
  1. LINZESS [Suspect]
     Active Substance: LINACLOTIDE
     Indication: CONSTIPATION
     Dosage: UNK
     Route: 065

REACTIONS (6)
  - Thyroid hormones decreased [Unknown]
  - Off label use [Unknown]
  - Dizziness [Unknown]
  - Muscle contractions involuntary [Unknown]
  - Abscess [Not Recovered/Not Resolved]
  - Pruritus [Unknown]
